FAERS Safety Report 14803118 (Version 1)
Quarter: 2018Q2

REPORT INFORMATION
  Report Type: Spontaneous
  Country: GB (occurrence: GB)
  Receive Date: 20180425
  Receipt Date: 20180425
  Transmission Date: 20180711
  Serious: Yes (Other)
  Sender: FDA-Public Use
  Company Number: GB-TEVA-2018-GB-884459

PATIENT
  Age: 88 Year
  Sex: Male
  Weight: 76 kg

DRUGS (4)
  1. SIMVASTATIN. [Concomitant]
     Active Substance: SIMVASTATIN
     Dosage: 1 DOSAGE FORMS DAILY; AT NIGHT
     Dates: start: 20170710
  2. SOLIFENACIN [Concomitant]
     Active Substance: SOLIFENACIN
     Dosage: 1 DOSAGE FORMS DAILY;
     Dates: start: 20161213, end: 20171227
  3. NITROFURANTOIN. [Concomitant]
     Active Substance: NITROFURANTOIN
     Dosage: 2 DOSAGE FORMS DAILY;
     Dates: start: 20171227, end: 20180103
  4. TRIMETHOPRIM. [Suspect]
     Active Substance: TRIMETHOPRIM
     Route: 048
     Dates: start: 20171227

REACTIONS (2)
  - Rash erythematous [Recovered/Resolved]
  - Skin exfoliation [Recovered/Resolved]

NARRATIVE: CASE EVENT DATE: 20171227
